FAERS Safety Report 13454229 (Version 1)
Quarter: 2017Q2

REPORT INFORMATION
  Report Type: Spontaneous
  Country: US (occurrence: US)
  Receive Date: 20170418
  Receipt Date: 20170418
  Transmission Date: 20170830
  Serious: No
  Sender: FDA-Public Use
  Company Number: US-ALLERGAN-1669142US

PATIENT
  Age: 35 Year
  Sex: Female

DRUGS (2)
  1. LATISSE [Suspect]
     Active Substance: BIMATOPROST
     Dosage: UNK
     Route: 061
     Dates: start: 20160813, end: 20160815
  2. LATISSE [Suspect]
     Active Substance: BIMATOPROST
     Indication: HYPOTRICHOSIS
     Dosage: 2 GTT, QHS
     Route: 061
     Dates: start: 20160620, end: 20160729

REACTIONS (4)
  - Drug dose omission [Unknown]
  - Eyelid rash [Recovered/Resolved]
  - Inappropriate schedule of drug administration [Unknown]
  - Rash [Recovered/Resolved]
